FAERS Safety Report 16189880 (Version 2)
Quarter: 2019Q2

REPORT INFORMATION
  Report Type: Spontaneous
  Country: CA (occurrence: CA)
  Receive Date: 20190412
  Receipt Date: 20190419
  Transmission Date: 20190711
  Serious: Yes (Hospitalization, Other)
  Sender: FDA-Public Use
  Company Number: CA-PFIZER INC-2019155764

PATIENT
  Sex: Male

DRUGS (7)
  1. TESTOSTERONE. [Suspect]
     Active Substance: TESTOSTERONE
     Dosage: UNK
     Route: 065
  2. ASPIRIN (E.C.) [Concomitant]
     Active Substance: ASPIRIN
     Dosage: 81 MG, 1X/DAY
     Route: 048
  3. SOMAVERT [Suspect]
     Active Substance: PEGVISOMANT
     Indication: ACROMEGALY
     Dosage: 20 MG, 1X/DAY
     Route: 058
  4. CORTEF [Suspect]
     Active Substance: HYDROCORTISONE
     Dosage: 20 MG, 1X/DAY
     Route: 048
  5. SOMAVERT [Suspect]
     Active Substance: PEGVISOMANT
     Dosage: UNK, 1X/DAY
     Route: 058
  6. SANDOSTATIN [Suspect]
     Active Substance: OCTREOTIDE ACETATE
     Dosage: 20 MG, CYCLIC (1 EVERY 4 WEEKS)
     Route: 030
  7. DELATESTRYL [Concomitant]
     Active Substance: TESTOSTERONE ENANTHATE
     Dosage: 100 MG, WEEKLY
     Route: 030

REACTIONS (5)
  - Inappropriate schedule of product administration [Not Recovered/Not Resolved]
  - Pulmonary embolism [Not Recovered/Not Resolved]
  - Arthralgia [Not Recovered/Not Resolved]
  - Injection site bruising [Not Recovered/Not Resolved]
  - Syringe issue [Not Recovered/Not Resolved]
